FAERS Safety Report 5527714-4 (Version None)
Quarter: 2007Q4

REPORT INFORMATION
  Report Type: 
  Country: None (occurrence: None)
  Receive Date: 20071123
  Receipt Date: 20071116
  Transmission Date: 20080405
  Serious: Yes (Hospitalization)
  Sender: FDA-Public Use
  Company Number: 2007SP023164

PATIENT
  Sex: Male
  Weight: 82.7 kg

DRUGS (11)
  1. TEMODAR [Suspect]
     Indication: GLIOBLASTOMA MULTIFORME
     Dosage: 75 MG/M2; QD; PO
     Route: 048
     Dates: start: 20070918
  2. BEVACIZUMAB [Suspect]
     Dosage: 10 MG/KG; IV
     Route: 042
     Dates: start: 20070918
  3. COZAAR [Concomitant]
  4. DEPAKOTE [Concomitant]
  5. FLOMAX [Concomitant]
  6. HYDROCHLOROTHIAZIDE [Concomitant]
  7. LEXAPRO [Concomitant]
  8. LOVENOX [Concomitant]
  9. NEXIUM [Concomitant]
  10. TEGRETOL [Concomitant]
  11. TOPROL-XL [Concomitant]

REACTIONS (3)
  - DEEP VEIN THROMBOSIS [None]
  - HAEMORRHAGE [None]
  - MEDICAL DEVICE COMPLICATION [None]
